FAERS Safety Report 8942343 (Version 1)
Quarter: 2012Q4

REPORT INFORMATION
  Report Type: Spontaneous
  Country: US (occurrence: None)
  Receive Date: 20121123
  Receipt Date: 20121123
  Transmission Date: 20130627
  Serious: Yes (Hospitalization)
  Sender: FDA-Public Use
  Company Number: 2012-1169

PATIENT
  Age: 62 Year
  Sex: Male

DRUGS (17)
  1. KYPROLIS [Suspect]
     Indication: MULTIPLE MYELOMA
     Route: 042
     Dates: start: 20121002
  2. KYPROLIS [Suspect]
     Indication: MULTIPLE MYELOMA
     Route: 042
  3. KYPROLIS [Suspect]
     Indication: MULTIPLE MYELOMA
  4. ATIVAN [Concomitant]
  5. WARFARIN SODIUM [Concomitant]
  6. BICALUTAMIDE [Concomitant]
  7. DECADRON [Concomitant]
  8. BUMEX [Concomitant]
  9. VITAMIN B6 [Concomitant]
  10. VITAMIN B12 [Concomitant]
  11. CALCIUM CARBONATE D (COLECALCIFEROL) [Concomitant]
  12. GABAPENTIN [Concomitant]
  13. OMEPRAZOLE [Concomitant]
  14. DILAUDID [Concomitant]
  15. COMPAZINE [Concomitant]
  16. MS CONTIN [Concomitant]
  17. POTASSIUM SUPPLEMENTATION (10053967) [Concomitant]

REACTIONS (2)
  - Pyrexia [None]
  - Influenza like illness [None]
